FAERS Safety Report 7522429-5 (Version None)
Quarter: 2011Q2

REPORT INFORMATION
  Report Type: 
  Country: None (occurrence: None)
  Receive Date: 20110525
  Receipt Date: 20110510
  Transmission Date: 20111010
  Serious: Yes (Life-Threatening, Hospitalization)
  Sender: FDA-Public Use
  Company Number: 2011MA005746

PATIENT
  Age: 61 Year
  Sex: Female

DRUGS (7)
  1. BACTRIM [Concomitant]
  2. DOXORUBICIN HCL [Concomitant]
  3. PACLITAXEL [Suspect]
     Indication: BREAST CANCER
  4. LOVENOX [Concomitant]
  5. CYCLOPHOSPHAMIDE [Concomitant]
  6. AZITHROMYCIN [Concomitant]
  7. CEFTRIAXONE [Concomitant]

REACTIONS (2)
  - PULMONARY EMBOLISM [None]
  - PNEUMOCYSTIS JIROVECI PNEUMONIA [None]
